FAERS Safety Report 19413567 (Version 1)
Quarter: 2021Q2

REPORT INFORMATION
  Report Type: Spontaneous
  Country: FR (occurrence: FR)
  Receive Date: 20210615
  Receipt Date: 20210615
  Transmission Date: 20210717
  Serious: Yes (Life-Threatening)
  Sender: FDA-Public Use
  Company Number: FR-SUN PHARMACEUTICAL INDUSTRIES LTD-2021RR-300528

PATIENT
  Age: 52 Year
  Sex: Female

DRUGS (2)
  1. BROMAZEPAM [Concomitant]
     Active Substance: BROMAZEPAM
     Indication: ANXIETY
     Dosage: 24 MILLIGRAM, UNK
     Route: 048
     Dates: start: 2001
  2. PAROXETINE. [Suspect]
     Active Substance: PAROXETINE
     Indication: MIXED ANXIETY AND DEPRESSIVE DISORDER
     Dosage: 20 MILLIGRAM, DAILY
     Route: 048
     Dates: start: 20210117, end: 20210516

REACTIONS (1)
  - Inappropriate antidiuretic hormone secretion [Recovered/Resolved]

NARRATIVE: CASE EVENT DATE: 20210516
